FAERS Safety Report 14475875 (Version 2)
Quarter: 2018Q1

REPORT INFORMATION
  Report Type: Spontaneous
  Country: US (occurrence: US)
  Receive Date: 20180201
  Receipt Date: 20180205
  Transmission Date: 20180509
  Serious: No
  Sender: FDA-Public Use
  Company Number: US-PFIZER INC-2018045579

PATIENT
  Sex: Female

DRUGS (2)
  1. ADVIL [Suspect]
     Active Substance: IBUPROFEN
     Dosage: 1200 MG, DAILY
  2. ADVIL [Suspect]
     Active Substance: IBUPROFEN
     Dosage: 800 MG, DAILY
     Dates: end: 20180129

REACTIONS (3)
  - Blood pressure increased [Unknown]
  - Pollakiuria [Unknown]
  - Fluid retention [Unknown]

NARRATIVE: CASE EVENT DATE: 20180130
